FAERS Safety Report 9380533 (Version 1)
Quarter: 2013Q3

REPORT INFORMATION
  Report Type: Spontaneous
  Country: NL (occurrence: NL)
  Receive Date: 20130702
  Receipt Date: 20130702
  Transmission Date: 20140515
  Serious: Yes (Hospitalization)
  Sender: FDA-Public Use
  Company Number: NL-NICOBRDEVP-2013-11417

PATIENT
  Age: 88 Year
  Sex: Male

DRUGS (8)
  1. VALSARTAN [Suspect]
     Indication: HYPERTENSION
     Dosage: 160 MG, DAILY
     Route: 048
     Dates: start: 2011, end: 20130605
  2. SOTALOL HYDROCHLORIDE (UNKNOWN) [Suspect]
     Indication: HYPERTENSION
     Dosage: 80 MG, UNKNOWN
     Route: 048
     Dates: start: 2011
  3. FUROSEMIDE (UNKNOWN) [Suspect]
     Indication: HYPERTENSION
     Dosage: 1 DF, UNKNOWN
     Route: 048
     Dates: start: 2011
  4. ZOLPIDEM [Concomitant]
     Indication: PRODUCT USED FOR UNKNOWN INDICATION
     Dosage: 10 MG, DAILY
     Route: 065
  5. CALCIUM CARBONATE W/COLECALCIFEROL [Concomitant]
     Indication: PRODUCT USED FOR UNKNOWN INDICATION
     Dosage: 1 DF, DAILY
  6. TAMSULOSIN [Concomitant]
     Indication: PRODUCT USED FOR UNKNOWN INDICATION
     Dosage: 0.4 MG, DAILY
     Route: 065
  7. AVODART [Concomitant]
     Indication: PRODUCT USED FOR UNKNOWN INDICATION
     Dosage: 0.5 MG, DAILY
     Route: 065
  8. OMEPRAZOLE [Concomitant]
     Indication: PRODUCT USED FOR UNKNOWN INDICATION
     Dosage: 40 MG, DAILY
     Route: 065

REACTIONS (2)
  - Syncope [Recovering/Resolving]
  - Hypotension [Recovering/Resolving]
